FAERS Safety Report 8543242-6 (Version None)
Quarter: 2012Q3

REPORT INFORMATION
  Report Type: 
  Country: None (occurrence: None)
  Receive Date: 20120716
  Receipt Date: 20120630
  Transmission Date: 20120928
  Serious: Yes (Other)
  Sender: FDA-Public Use
  Company Number: 2012BL004158

PATIENT
  Age: 24 Year
  Sex: Female

DRUGS (4)
  1. ZYMAR (GATIFLOCXACIN) (GATIFLOXACIN) [Concomitant]
  2. ZYMAXID (GATIFLOXACIN) (GATIFLOXACIN) [Concomitant]
  3. BESIVANCE (BESIFLOXACIN OPHTHALMIC SUSPENSION) 0.6% (EYE DROPS, SUSPEN [Suspect]
     Indication: OFF LABEL USE
     Dosage: 3 GTT (1 GTT, 3 IN 1 D), OPHTHALMIC
     Route: 047
     Dates: start: 20120524
  4. BESIVANCE (BESIFLOXACIN OPHTHALMIC SUSPENSION) 0.6% (EYE DROPS, SUSPEN [Suspect]
     Indication: POSTOPERATIVE CARE
     Dosage: 3 GTT (1 GTT, 3 IN 1 D), OPHTHALMIC
     Route: 047
     Dates: start: 20120524

REACTIONS (1)
  - NEOPLASM SKIN [None]
